FAERS Safety Report 25012349 (Version 2)
Quarter: 2025Q1

REPORT INFORMATION
  Report Type: Spontaneous
  Country: CN (occurrence: CN)
  Receive Date: 20250226
  Receipt Date: 20250309
  Transmission Date: 20250409
  Serious: Yes (Death, Hospitalization)
  Sender: MACLEODS
  Company Number: CN-MLMSERVICE-20250207-PI401011-00266-1

PATIENT

DRUGS (2)
  1. POTASSIUM CHLORIDE [Suspect]
     Active Substance: POTASSIUM CHLORIDE
     Indication: Hypokalaemia
     Route: 042
  2. SODIUM CHLORIDE [Concomitant]
     Active Substance: SODIUM CHLORIDE
     Indication: Product used for unknown indication
     Route: 042

REACTIONS (10)
  - Craniocerebral injury [Fatal]
  - Condition aggravated [Fatal]
  - Catheter site related reaction [Unknown]
  - Infusion site swelling [Unknown]
  - Infusion site discolouration [Unknown]
  - Infusion site plaque [Unknown]
  - Infusion site erythema [Unknown]
  - Infusion site extravasation [Unknown]
  - Administration site extravasation [Unknown]
  - Extravasation [Unknown]
